FAERS Safety Report 19507706 (Version 3)
Quarter: 2021Q3

REPORT INFORMATION
  Report Type: Report from Study
  Country: DE (occurrence: DE)
  Receive Date: 20210708
  Receipt Date: 20210930
  Transmission Date: 20211014
  Serious: Yes (Other)
  Sender: FDA-Public Use
  Company Number: DE-MYLANLABS-2021M1038889

PATIENT
  Age: 52 Year
  Sex: Female
  Weight: 88.2 kg

DRUGS (7)
  1. LETROZOLE. [Suspect]
     Active Substance: LETROZOLE
     Indication: BREAST CANCER METASTATIC
     Dosage: 2.5 MILLIGRAM, QD
     Route: 048
     Dates: start: 20191125
  2. PALBOCICLIB [Suspect]
     Active Substance: PALBOCICLIB
     Dosage: 125 MILLIGRAM, QD (DAILY, ONCE IN THE EVENING)
     Route: 048
     Dates: start: 20200622, end: 20200830
  3. LHRH [Concomitant]
     Active Substance: GONADORELIN DIACETATE TETRAHYDRATE
     Indication: BREAST CANCER METASTATIC
     Dosage: 3.6 MILLIGRAM, MONTHLY
     Route: 030
     Dates: start: 20191125
  4. PALBOCICLIB [Suspect]
     Active Substance: PALBOCICLIB
     Indication: BREAST CANCER METASTATIC
     Dosage: 125 MILLIGRAM, QD (DAILY, ONCE IN THE EVENING)
     Route: 048
     Dates: start: 20200316, end: 20200514
  5. KISQALI [Suspect]
     Active Substance: RIBOCICLIB
     Indication: BREAST CANCER METASTATIC
     Dosage: 600 MG, QD (ADMINISTRATION SCHEME 21 DAYS INTAKE, 7 DAYS PAUSE)
     Route: 048
     Dates: start: 20191125, end: 20200216
  6. PALBOCICLIB [Suspect]
     Active Substance: PALBOCICLIB
     Dosage: 100 MILLIGRAM, QD (DAILY, ONCE IN THE EVENING)
     Route: 048
     Dates: start: 20200901
  7. PALBOCICLIB [Suspect]
     Active Substance: PALBOCICLIB
     Dosage: 125 MILLIGRAM, QD (DAILY, ONCE IN THE EVENING)
     Route: 048
     Dates: start: 20200519, end: 20200614

REACTIONS (9)
  - Sleep disorder [Not Recovered/Not Resolved]
  - Arthralgia [Recovered/Resolved]
  - Diarrhoea [Recovered/Resolved]
  - Neutropenia [Recovered/Resolved]
  - Musculoskeletal discomfort [Not Recovered/Not Resolved]
  - Alanine aminotransferase increased [Recovered/Resolved]
  - Hot flush [Not Recovered/Not Resolved]
  - Aspartate aminotransferase increased [Recovered/Resolved]
  - Nasopharyngitis [Recovered/Resolved]

NARRATIVE: CASE EVENT DATE: 20191206
